FAERS Safety Report 11544467 (Version 1)
Quarter: 2015Q3

REPORT INFORMATION
  Report Type: Spontaneous
  Country: US (occurrence: None)
  Receive Date: 20150923
  Receipt Date: 20150923
  Transmission Date: 20151125
  Serious: Yes (Hospitalization, Disabling)
  Sender: FDA-Public Use
  Company Number: None

PATIENT
  Age: 42 Year
  Sex: Female
  Weight: 110.22 kg

DRUGS (18)
  1. BENADRYL [Concomitant]
     Active Substance: DIPHENHYDRAMINE HYDROCHLORIDE
  2. LIDOCAINE CREAM [Concomitant]
  3. SIGNULAR [Concomitant]
  4. ZONISAMIDE. [Concomitant]
     Active Substance: ZONISAMIDE
  5. CLONAZEPAM. [Concomitant]
     Active Substance: CLONAZEPAM
  6. NEXIUM [Concomitant]
     Active Substance: ESOMEPRAZOLE MAGNESIUM
  7. DOXEPIN [Concomitant]
     Active Substance: DOXEPIN
  8. LYRICA [Concomitant]
     Active Substance: PREGABALIN
  9. PERCECET [Concomitant]
  10. TRAZODONE [Concomitant]
     Active Substance: TRAZODONE HYDROCHLORIDE
  11. MIDODRINE [Concomitant]
     Active Substance: MIDODRINE
  12. SYMBICORT [Concomitant]
     Active Substance: BUDESONIDE\FORMOTEROL FUMARATE DIHYDRATE
  13. DICYCLOMINE [Concomitant]
     Active Substance: DICYCLOMINE HYDROCHLORIDE
  14. PLAQUNIEL [Concomitant]
  15. LEVOTHYROXINE. [Concomitant]
     Active Substance: LEVOTHYROXINE
  16. VELCADE [Suspect]
     Active Substance: BORTEZOMIB
     Indication: RENAL TRANSPLANT
     Dosage: EVERY TWO WEEKS INTO THE MUSCLE
  17. FLUTICASONE [Concomitant]
     Active Substance: FLUTICASONE\FLUTICASONE PROPIONATE
  18. PROVENTIL [Concomitant]
     Active Substance: ALBUTEROL

REACTIONS (4)
  - Abasia [None]
  - Activities of daily living impaired [None]
  - Neuropathy peripheral [None]
  - Nerve injury [None]

NARRATIVE: CASE EVENT DATE: 20140707
